FAERS Safety Report 22363168 (Version 1)
Quarter: 2023Q2

REPORT INFORMATION
  Report Type: Spontaneous
  Country: US (occurrence: US)
  Receive Date: 20230525
  Receipt Date: 20230525
  Transmission Date: 20230722
  Serious: Yes (Hospitalization, Other)
  Sender: FDA-Public Use
  Company Number: US-SLATE RUN PHARMACEUTICALS-23US001607

PATIENT

DRUGS (4)
  1. POTASSIUM CHLORIDE [Suspect]
     Active Substance: POTASSIUM CHLORIDE
     Indication: Intentional overdose
     Dosage: 1400 MILLIEQUIVALENT
  2. METOPROLOL SUCCINATE [Suspect]
     Active Substance: METOPROLOL SUCCINATE
     Indication: Intentional overdose
     Dosage: 500 MILLIGRAM
  3. RIVAROXABAN [Suspect]
     Active Substance: RIVAROXABAN
     Indication: Intentional overdose
     Dosage: 400 MILLIGRAM
  4. HYDROXYZINE [Suspect]
     Active Substance: HYDROXYZINE HYDROCHLORIDE
     Indication: Intentional overdose
     Dosage: 500 MILLIGRAM

REACTIONS (6)
  - Intentional overdose [Recovered/Resolved]
  - Hypotension [Recovered/Resolved]
  - Coagulopathy [Recovered/Resolved]
  - Agitation [Recovered/Resolved]
  - Cardiac arrest [Recovered/Resolved]
  - Vomiting [Recovered/Resolved]
